FAERS Safety Report 17902598 (Version 1)
Quarter: 2020Q2

REPORT INFORMATION
  Report Type: Spontaneous
  Country: FR (occurrence: FR)
  Receive Date: 20200616
  Receipt Date: 20200616
  Transmission Date: 20200714
  Serious: Yes (Hospitalization, Other)
  Sender: FDA-Public Use
  Company Number: PHHY2018FR132077

PATIENT
  Age: 21 Year
  Sex: Female
  Weight: 107 kg

DRUGS (5)
  1. PARACETAMOL [Suspect]
     Active Substance: ACETAMINOPHEN
     Indication: INTENTIONAL OVERDOSE
     Dosage: 16 G, UNK
     Route: 048
  2. VALPROMIDE [Suspect]
     Active Substance: VALPROMIDE
     Indication: INTENTIONAL OVERDOSE
     Dosage: 9 G, UNK
     Route: 048
  3. RIVAROXABAN [Suspect]
     Active Substance: RIVAROXABAN
     Indication: ANTICOAGULANT THERAPY
     Dosage: 420 MG, UNK
     Route: 048
  4. RIVAROXABAN [Suspect]
     Active Substance: RIVAROXABAN
     Indication: INTENTIONAL OVERDOSE
  5. PROPRANOLOL [Suspect]
     Active Substance: PROPRANOLOL HYDROCHLORIDE
     Indication: POISONING DELIBERATE
     Dosage: 80 MG, UNK
     Route: 048

REACTIONS (7)
  - Suicide attempt [Unknown]
  - Product use issue [Unknown]
  - Off label use [Unknown]
  - Toxicity to various agents [Recovered/Resolved]
  - Bradycardia [Unknown]
  - Poisoning deliberate [Unknown]
  - Intentional overdose [Unknown]
